FAERS Safety Report 4898858-5 (Version None)
Quarter: 2006Q1

REPORT INFORMATION
  Report Type: 
  Country: None (occurrence: None)
  Receive Date: 20060104
  Receipt Date: 20050909
  Transmission Date: 20060701
  Serious: Yes (Disabling)
  Sender: FDA-Public Use
  Company Number: A03200502834

PATIENT
  Age: 49 Year
  Sex: Female
  Weight: 59.8748 kg

DRUGS (7)
  1. ELOXATIN [Suspect]
     Indication: COLORECTAL CANCER
     Dosage: 146 MG OVER 2 HOURS Q2W - INTRAVENOUS NOS
     Route: 042
     Dates: start: 20050516, end: 20050516
  2. FLUOROURACIL [Concomitant]
  3. LEUCOVORIN CALCIUM [Concomitant]
  4. PALONOSETRON HYDROCHLORIDE [Concomitant]
  5. DEXAMETHASONE [Concomitant]
  6. MAGNESIUM SULFATE [Concomitant]
  7. CALCIUM GLUCONATE [Concomitant]

REACTIONS (1)
  - NEUROPATHY [None]
